FAERS Safety Report 6985859-6 (Version None)
Quarter: 2010Q3

REPORT INFORMATION
  Report Type: 
  Country: None (occurrence: None)
  Receive Date: 20100915
  Receipt Date: 20100902
  Transmission Date: 20110219
  Serious: Yes (Other)
  Sender: FDA-Public Use
  Company Number: NZ-WYE-G06669110

PATIENT
  Age: 73 Year
  Sex: Female

DRUGS (3)
  1. EFFEXOR XR [Suspect]
     Dosage: 37.5MG FOR A COUPLE OF MONTHS, 2X37.5MG CAPSULES FOR 1 MONTH, 1X75MG CAPSULE DAILY CONTINUING
     Dates: start: 20100101
  2. RANITIDINE [Concomitant]
  3. MOTILIUM [Concomitant]

REACTIONS (4)
  - EYE IRRITATION [None]
  - EYE PAIN [None]
  - INTRAOCULAR PRESSURE INCREASED [None]
  - MIDDLE INSOMNIA [None]
